FAERS Safety Report 5756599-6 (Version None)
Quarter: 2008Q2

REPORT INFORMATION
  Report Type: 
  Country: None (occurrence: None)
  Receive Date: 20080528
  Receipt Date: 20080509
  Transmission Date: 20081010
  Serious: Yes (Death)
  Sender: FDA-Public Use
  Company Number: 2008AL004436

PATIENT
  Age: 84 Year
  Sex: Male
  Weight: 83.9154 kg

DRUGS (8)
  1. DIGOXIN [Suspect]
     Indication: CARDIAC FAILURE CONGESTIVE
     Dosage: 0.25 MG, 1 DAILY, PO
     Route: 048
  2. COUMADIN [Concomitant]
  3. LISINOPRIL [Concomitant]
  4. ISOSORBIDE DINITRATE [Concomitant]
  5. ASPIRIN [Concomitant]
  6. FUROSEMIDE [Concomitant]
  7. KALOR-CON [Concomitant]
  8. TIKOSYN [Concomitant]

REACTIONS (2)
  - FATIGUE [None]
  - JOINT EFFUSION [None]
